FAERS Safety Report 23728742 (Version 1)
Quarter: 2024Q2

REPORT INFORMATION
  Report Type: Spontaneous
  Country: US (occurrence: None)
  Receive Date: 20240410
  Receipt Date: 20240410
  Transmission Date: 20240715
  Serious: Yes (unspecified)
  Sender: FDA-Public Use
  Company Number: None

PATIENT
  Age: 44 Year
  Sex: Female
  Weight: 68.85 kg

DRUGS (2)
  1. BUPROPION [Suspect]
     Active Substance: BUPROPION
     Indication: Depression
     Dates: start: 20240229, end: 20240310
  2. BUPROPION [Suspect]
     Active Substance: BUPROPION
     Indication: Anxiety

REACTIONS (2)
  - Vulvovaginal dryness [None]
  - Product label issue [None]

NARRATIVE: CASE EVENT DATE: 20240311
